FAERS Safety Report 9803485 (Version 2)
Quarter: 2014Q3

REPORT INFORMATION
  Report Type: Spontaneous
  Country: US (occurrence: US)
  Receive Date: 20140108
  Receipt Date: 20140807
  Transmission Date: 20150326
  Serious: No
  Sender: FDA-Public Use
  Company Number: US-009507513-1401USA001397

PATIENT
  Sex: Female
  Weight: 55.33 kg

DRUGS (1)
  1. NUVARING [Suspect]
     Active Substance: ETHINYL ESTRADIOL\ETONOGESTREL
     Route: 067

REACTIONS (8)
  - Ovarian cyst [Unknown]
  - Trichotillomania [Unknown]
  - Deep vein thrombosis [Unknown]
  - Deep vein thrombosis [Unknown]
  - Delivery [Unknown]
  - Dyspnoea exertional [Unknown]
  - Deep vein thrombosis [Not Recovered/Not Resolved]
  - Venous ligation [Unknown]

NARRATIVE: CASE EVENT DATE: 200610
